FAERS Safety Report 16819658 (Version 1)
Quarter: 2019Q3

REPORT INFORMATION
  Report Type: Spontaneous
  Country: US (occurrence: US)
  Receive Date: 20190917
  Receipt Date: 20190917
  Transmission Date: 20191005
  Serious: No
  Sender: FDA-Public Use
  Company Number: US-ACTELION-A-US2019-194146

PATIENT
  Age: 87 Year
  Sex: Female

DRUGS (11)
  1. COREG [Concomitant]
     Active Substance: CARVEDILOL
  2. PROTECT [Concomitant]
     Active Substance: AVOBENZONE\OCTINOXATE\OCTISALATE\OXYBENZONE
  3. FUSION PLUS [Concomitant]
     Active Substance: IRON\VITAMIN B
  4. OMEPRAZOLE. [Concomitant]
     Active Substance: OMEPRAZOLE
  5. ALBUTEROL SULFATE. [Concomitant]
     Active Substance: ALBUTEROL SULFATE
  6. OPSUMIT [Suspect]
     Active Substance: MACITENTAN
     Indication: PULMONARY ARTERIAL HYPERTENSION
     Dosage: 10 MG, QD
     Route: 048
     Dates: start: 20180607
  7. HESPERIDIN [Concomitant]
     Active Substance: HESPERIDIN
  8. LOSARTAN. [Concomitant]
     Active Substance: LOSARTAN
  9. NEURONTIN [Concomitant]
     Active Substance: GABAPENTIN
  10. FUROSEMIDE. [Concomitant]
     Active Substance: FUROSEMIDE
  11. PLAVIX [Concomitant]
     Active Substance: CLOPIDOGREL BISULFATE

REACTIONS (4)
  - Oedema peripheral [Unknown]
  - Nasal congestion [Not Recovered/Not Resolved]
  - Cardiovascular disorder [Unknown]
  - Venous occlusion [Unknown]

NARRATIVE: CASE EVENT DATE: 20190806
